FAERS Safety Report 10076786 (Version 2)
Quarter: 2014Q2

REPORT INFORMATION
  Report Type: Spontaneous
  Country: ZA (occurrence: ZA)
  Receive Date: 20140414
  Receipt Date: 20140422
  Transmission Date: 20141212
  Serious: Yes (Death, Other)
  Sender: FDA-Public Use
  Company Number: ZA-PFIZER INC-2014100293

PATIENT
  Age: 4 Decade
  Sex: Female

DRUGS (4)
  1. CHAMPIX [Suspect]
     Indication: SMOKING CESSATION THERAPY
     Dosage: 0.5 MG, DAILY
     Route: 048
     Dates: start: 201307, end: 201308
  2. CHAMPIX [Suspect]
     Dosage: 1 MG, DAILY
     Route: 048
  3. NUZAK [Concomitant]
     Indication: ANTIDEPRESSANT THERAPY
     Dosage: UNK
     Route: 048
  4. ALTOSEC [Concomitant]
     Indication: GASTRIC ULCER
     Dosage: UNK
     Route: 048
     Dates: end: 201308

REACTIONS (3)
  - Myocardial infarction [Fatal]
  - Foetal death [Unknown]
  - Pre-eclampsia [Not Recovered/Not Resolved]
